FAERS Safety Report 19871575 (Version 1)
Quarter: 2021Q3

REPORT INFORMATION
  Report Type: Spontaneous
  Country: US (occurrence: US)
  Receive Date: 20210922
  Receipt Date: 20210922
  Transmission Date: 20211014
  Serious: Yes (Other)
  Sender: FDA-Public Use
  Company Number: US-PERRIGO-21US026653

PATIENT
  Age: 22 Year
  Sex: Female

DRUGS (2)
  1. RANITIDINE HYDROCHLORIDE (852) [Suspect]
     Active Substance: RANITIDINE HYDROCHLORIDE
     Indication: DYSPEPSIA
  2. RANITIDINE HYDROCHLORIDE (852) [Suspect]
     Active Substance: RANITIDINE HYDROCHLORIDE
     Indication: GASTROOESOPHAGEAL REFLUX DISEASE
     Dosage: DOSE FREQUENCY: OTHER ? DAILY WITH PREGNANCY, 3 TIMES A WEEK OTHERWISE
     Route: 048
     Dates: start: 199610, end: 201905

REACTIONS (5)
  - Uterine cancer [Unknown]
  - Cervix carcinoma [Unknown]
  - Lymphoma [Unknown]
  - Ovarian cancer [Unknown]
  - Skin cancer [Unknown]

NARRATIVE: CASE EVENT DATE: 20010301
